FAERS Safety Report 8789280 (Version 1)
Quarter: 2012Q4

REPORT INFORMATION
  Report Type: Spontaneous
  Country: US (occurrence: None)
  Receive Date: 20120910
  Receipt Date: 20120910
  Transmission Date: 20130627
  Serious: Yes (Life-Threatening)
  Sender: FDA-Public Use
  Company Number: None

PATIENT
  Age: 75 Year
  Sex: Male
  Weight: 81 kg

DRUGS (2)
  1. CLOPIDOGREL [Suspect]
     Route: 048
     Dates: start: 20120813, end: 20120813
  2. CLOPIDOGREL [Suspect]
     Route: 048
     Dates: start: 20120814

REACTIONS (1)
  - Thrombosis in device [None]
